FAERS Safety Report 23956739 (Version 2)
Quarter: 2024Q3

REPORT INFORMATION
  Report Type: Report from Study
  Country: US (occurrence: US)
  Receive Date: 20240610
  Receipt Date: 20240710
  Transmission Date: 20241017
  Serious: No
  Sender: SANDOZ
  Company Number: US-SANDOZ-SDZ2024US053744

PATIENT
  Age: 2 Year
  Sex: Male

DRUGS (4)
  1. OMNITROPE [Suspect]
     Active Substance: SOMATROPIN
     Dosage: 6 TIMES A WEEK (0.4 MG DOSE EVERY WEEK)
     Route: 058
     Dates: start: 20240605, end: 20240708
  2. OMNITROPE [Suspect]
     Active Substance: SOMATROPIN
     Dosage: 6 TIMES A WEEK (0.4 MG DOSE EVERY WEEK)
     Route: 058
     Dates: start: 20240605, end: 20240708
  3. OMNITROPE [Suspect]
     Active Substance: SOMATROPIN
     Indication: Hypopituitarism
     Dosage: UNK
     Route: 065
  4. OMNITROPE [Suspect]
     Active Substance: SOMATROPIN
     Indication: Hypopituitarism
     Dosage: UNK
     Route: 065

REACTIONS (3)
  - Wrong technique in product usage process [Unknown]
  - Incorrect dose administered [Unknown]
  - Device issue [Not Recovered/Not Resolved]

NARRATIVE: CASE EVENT DATE: 20240605
